FAERS Safety Report 16419138 (Version 1)
Quarter: 2019Q2

REPORT INFORMATION
  Report Type: Spontaneous
  Country: PL (occurrence: PL)
  Receive Date: 20190612
  Receipt Date: 20190612
  Transmission Date: 20190711
  Serious: Yes (Hospitalization, Other)
  Sender: FDA-Public Use
  Company Number: PL-TEVA-2019-PL-1062122

PATIENT
  Sex: Male

DRUGS (4)
  1. PRESSURE AMINES [Concomitant]
  2. CLOPIDOGREL [Suspect]
     Active Substance: CLOPIDOGREL BISULFATE
     Dates: start: 201107
  3. ACETYLSALICYLIC ACID [Suspect]
     Active Substance: ASPIRIN
     Dates: start: 201107
  4. ABCIXIMAB [Suspect]
     Active Substance: ABCIXIMAB
     Dates: start: 201107

REACTIONS (1)
  - Haematemesis [Recovered/Resolved]

NARRATIVE: CASE EVENT DATE: 201107
